FAERS Safety Report 18230545 (Version 1)
Quarter: 2020Q3

REPORT INFORMATION
  Report Type: Spontaneous
  Country: IN (occurrence: IN)
  Receive Date: 20200903
  Receipt Date: 20200903
  Transmission Date: 20201103
  Serious: Yes (Other)
  Sender: FDA-Public Use
  Company Number: IN-BAXTER-2020BAX017801

PATIENT
  Age: 42 Year
  Sex: Female

DRUGS (7)
  1. DICLOPHASE [Suspect]
     Active Substance: DICLOFENAC SODIUM
     Indication: SKIN TEST
     Dosage: 0.2MG/ML  CONCENTRATION
     Route: 065
  2. NIMESULIDE [Suspect]
     Active Substance: NIMESULIDE
     Indication: BACK PAIN
     Route: 065
  3. KETOROLAC [Suspect]
     Active Substance: KETOROLAC TROMETHAMINE
     Indication: DRUG PROVOCATION TEST
     Route: 060
  4. IBUPROFEN. [Suspect]
     Active Substance: IBUPROFEN
     Indication: BACK PAIN
     Route: 065
  5. TAMIN [PARACETAMOL] [Suspect]
     Active Substance: ACETAMINOPHEN
     Indication: SKIN TEST
     Dosage: 0.5 MG/ML CONCENTRATION
     Route: 065
  6. DICLOPHASE [Suspect]
     Active Substance: DICLOFENAC SODIUM
     Indication: BACK PAIN
     Route: 065
  7. DICLOPHASE [Suspect]
     Active Substance: DICLOFENAC SODIUM
     Indication: SKIN TEST
     Dosage: TEST DOSE
     Route: 023

REACTIONS (1)
  - Angioedema [Unknown]
